FAERS Safety Report 7156498-1 (Version None)
Quarter: 2010Q4

REPORT INFORMATION
  Report Type: 
  Country: None (occurrence: None)
  Receive Date: 20101214
  Receipt Date: 20091113
  Transmission Date: 20110411
  Serious: No
  Sender: FDA-Public Use
  Company Number: US-ASTRAZENECA-2009SE26470

PATIENT
  Age: 79 Year
  Sex: Male
  Weight: 127 kg

DRUGS (5)
  1. CRESTOR [Suspect]
     Indication: BLOOD CHOLESTEROL INCREASED
     Route: 048
     Dates: start: 20090901
  2. NEXIUM [Concomitant]
     Route: 048
  3. ALBUTEROL INHALER [Concomitant]
     Route: 065
  4. AVODART [Concomitant]
     Route: 065
  5. AVADEX [Concomitant]
     Route: 065

REACTIONS (1)
  - POLLAKIURIA [None]
